FAERS Safety Report 8152193-0 (Version None)
Quarter: 2012Q1

REPORT INFORMATION
  Report Type: 
  Country: None (occurrence: None)
  Receive Date: 20120214
  Receipt Date: 20120131
  Transmission Date: 20120608
  Serious: Yes (Hospitalization)
  Sender: FDA-Public Use
  Company Number: EU-2012-10029

PATIENT
  Sex: Male
  Weight: 80 kg

DRUGS (5)
  1. METFORMIN HCL [Concomitant]
  2. GLIMEPRID (GLIMERIDE) [Concomitant]
  3. SAMSCA [Suspect]
     Indication: HYPONATRAEMIA
     Dosage: 15 MG MILLIGRAM(S), DAILY DOSE, ORAL
     Route: 048
     Dates: start: 20120103, end: 20120103
  4. SAMSCA [Suspect]
     Indication: INAPPROPRIATE ANTIDIURETIC HORMONE SECRETION
     Dosage: 15 MG MILLIGRAM(S), DAILY DOSE, ORAL
     Route: 048
     Dates: start: 20120103, end: 20120103
  5. BISOPROLOL (BISOPROLOL HEMIFUMARATE) [Concomitant]

REACTIONS (4)
  - CONFUSIONAL STATE [None]
  - UROGENITAL DISORDER [None]
  - BALANITIS [None]
  - MUCOSAL INFLAMMATION [None]
